FAERS Safety Report 8598367-6 (Version None)
Quarter: 2012Q3

REPORT INFORMATION
  Report Type: 
  Country: None (occurrence: None)
  Receive Date: 20120816
  Receipt Date: 20120807
  Transmission Date: 20120928
  Serious: Yes (Hospitalization)
  Sender: FDA-Public Use
  Company Number: DE-JNJFOC-20120805415

PATIENT
  Age: 54 Year
  Sex: Female

DRUGS (3)
  1. METHOTREXATE [Concomitant]
     Dosage: DOSE 15
     Dates: start: 20050406
  2. REMICADE [Suspect]
     Indication: RHEUMATOID ARTHRITIS
     Route: 042
     Dates: start: 20050301, end: 20080601
  3. METHOTREXATE [Concomitant]
     Dosage: DOSE 20
     Dates: start: 20110217

REACTIONS (2)
  - VENOUS THROMBOSIS LIMB [None]
  - PELVIC FLOOR REPAIR [None]
